FAERS Safety Report 9379076 (Version 1)
Quarter: 2013Q3

REPORT INFORMATION
  Report Type: Spontaneous
  Country: US (occurrence: US)
  Receive Date: 20130702
  Receipt Date: 20130702
  Transmission Date: 20140515
  Serious: Yes (Other)
  Sender: FDA-Public Use
  Company Number: PHEH2013US013594

PATIENT
  Sex: Male

DRUGS (8)
  1. EXELON PATCH [Suspect]
     Dosage: 13.3 MG, DAILY
  2. EXELON PATCH [Suspect]
     Dosage: 9.5 MG, DAILY
     Route: 062
  3. NAMENDA [Concomitant]
     Dosage: 10 MG, UNK
  4. METFORMIN [Concomitant]
     Indication: TYPE 2 DIABETES MELLITUS
  5. ADVAIR [Concomitant]
  6. SPIRIVA [Concomitant]
  7. THEOPHYLLINE [Concomitant]
     Indication: DYSPNOEA
  8. VENTOLINE [Concomitant]

REACTIONS (2)
  - Chronic obstructive pulmonary disease [Unknown]
  - Drug intolerance [Unknown]
